FAERS Safety Report 13490192 (Version 1)
Quarter: 2017Q2

REPORT INFORMATION
  Report Type: Spontaneous
  Country: US (occurrence: US)
  Receive Date: 20170427
  Receipt Date: 20170427
  Transmission Date: 20170830
  Serious: Yes (Hospitalization)
  Sender: FDA-Public Use
  Company Number: None

PATIENT
  Age: 60 Year
  Sex: Female
  Weight: 74.25 kg

DRUGS (1)
  1. HIZENTRA [Suspect]
     Active Substance: HUMAN IMMUNOGLOBULIN G
     Indication: HYPOGAMMAGLOBULINAEMIA
     Dosage: ?          OTHER FREQUENCY:EVERY 14 DAYS;?
     Route: 058
     Dates: start: 20160901

REACTIONS (8)
  - Pruritus [None]
  - Infusion related reaction [None]
  - Infusion site bruising [None]
  - Infusion site swelling [None]
  - Hypersensitivity [None]
  - Burning sensation [None]
  - Eye swelling [None]
  - Pharyngeal oedema [None]

NARRATIVE: CASE EVENT DATE: 20170426
